FAERS Safety Report 22226638 (Version 2)
Quarter: 2023Q2

REPORT INFORMATION
  Report Type: Spontaneous
  Country: PL (occurrence: None)
  Receive Date: 20230419
  Receipt Date: 20230524
  Transmission Date: 20230722
  Serious: Yes (Hospitalization, Other)
  Sender: FDA-Public Use
  Company Number: PL-ROCHE-3330120

PATIENT
  Age: 73 Year
  Sex: Male

DRUGS (1)
  1. EMICIZUMAB [Suspect]
     Active Substance: EMICIZUMAB
     Indication: Haemophilia A without inhibitors
     Route: 058
     Dates: start: 201706

REACTIONS (10)
  - Fall [Unknown]
  - Joint injury [Unknown]
  - SARS-CoV-2 test positive [Unknown]
  - Cholecystitis [Unknown]
  - Pancreatitis [Unknown]
  - Pneumonia staphylococcal [Unknown]
  - Acute respiratory distress syndrome [Unknown]
  - Abdominal tenderness [Unknown]
  - Sepsis [Unknown]
  - Tracheostomy [Unknown]

NARRATIVE: CASE EVENT DATE: 20200521
